FAERS Safety Report 22738349 (Version 6)
Quarter: 2024Q4

REPORT INFORMATION
  Report Type: Spontaneous
  Country: US (occurrence: US)
  Receive Date: 20230721
  Receipt Date: 20241209
  Transmission Date: 20250114
  Serious: No
  Sender: PFIZER
  Company Number: US-PFIZER INC-PV202300125760

PATIENT
  Age: 85 Year
  Sex: Female

DRUGS (11)
  1. IBRANCE [Suspect]
     Active Substance: PALBOCICLIB
     Indication: Breast cancer metastatic
     Dosage: UNK, CYCLIC (D1- 21)
     Route: 048
     Dates: start: 20200508, end: 20200706
  2. IBRANCE [Suspect]
     Active Substance: PALBOCICLIB
     Indication: Breast cancer female
     Dosage: UNK, CYCLIC (D1- 21 Q28D)
     Route: 048
     Dates: start: 20200717
  3. IBRANCE [Suspect]
     Active Substance: PALBOCICLIB
     Dosage: 125 MG, CYCLIC (DALLY X 21 DAYS, 7 DAYS OFF)
     Dates: start: 20200805
  4. IBRANCE [Suspect]
     Active Substance: PALBOCICLIB
     Dosage: 100 MG, CYCLIC (DALLY X 21 DAYS, 7 DAYS OFF)
     Route: 048
     Dates: start: 20200812
  5. IBRANCE [Suspect]
     Active Substance: PALBOCICLIB
     Dosage: 100 MG, CYCLIC (DALLY X 21 DAYS, 7 DAYS OFF)
     Dates: start: 20210125
  6. IBRANCE [Suspect]
     Active Substance: PALBOCICLIB
     Dosage: 100 MG, CYCLIC (DALLY X 21 DAYS, 7 DAYS OFF)
     Dates: start: 20210126
  7. IBRANCE [Suspect]
     Active Substance: PALBOCICLIB
     Dosage: 100 MG, CYCLIC (DALLY X 21 DAYS, 7 DAYS OFF)
     Route: 048
     Dates: start: 20210709
  8. IBRANCE [Suspect]
     Active Substance: PALBOCICLIB
     Dosage: 75 MG, CYCLIC (Q DAY X 21 DAYS, 7 DAYS OFF)
     Route: 048
     Dates: start: 20220815
  9. IBRANCE [Suspect]
     Active Substance: PALBOCICLIB
     Dosage: 75 MG, CYCLIC (EVERY DAY X 14 DAYS , 14 DAYS OFF)
     Route: 048
     Dates: start: 20231107
  10. FASLODEX [Concomitant]
     Active Substance: FULVESTRANT
     Indication: Breast cancer metastatic
     Dosage: UNK
     Route: 030
     Dates: start: 20200717
  11. ARIMIDEX [Concomitant]
     Active Substance: ANASTROZOLE
     Indication: Breast cancer metastatic
     Dosage: UNK, 1X/DAY
     Route: 048
     Dates: start: 20200508, end: 20200706

REACTIONS (3)
  - Neoplasm progression [Unknown]
  - Off label use [Unknown]
  - Product use issue [Unknown]
